FAERS Safety Report 14258039 (Version 1)
Quarter: 2017Q4

REPORT INFORMATION
  Report Type: Spontaneous
  Country: KR (occurrence: KR)
  Receive Date: 20171207
  Receipt Date: 20171207
  Transmission Date: 20180321
  Serious: Yes (Other)
  Sender: FDA-Public Use
  Company Number: KR-CIPLA LTD.-2017KR21483

PATIENT

DRUGS (2)
  1. GABAPENTIN. [Suspect]
     Active Substance: GABAPENTIN
     Indication: POST HERPETIC NEURALGIA
     Dosage: UNK, FOR 8 DAYS
     Route: 048
  2. METHYLON [Concomitant]
     Active Substance: METHYLPREDNISOLONE
     Indication: POST HERPETIC NEURALGIA
     Dosage: UNK, FOR 8 DAYS
     Route: 048

REACTIONS (2)
  - Macular oedema [Recovering/Resolving]
  - Retinal detachment [Recovering/Resolving]
